FAERS Safety Report 9238575 (Version 2)
Quarter: 2013Q2

REPORT INFORMATION
  Report Type: Spontaneous
  Country: US (occurrence: US)
  Receive Date: 20130418
  Receipt Date: 20130514
  Transmission Date: 20140414
  Serious: Yes (Life-Threatening, Disabling)
  Sender: FDA-Public Use
  Company Number: US-CELGENEUS-163-21880-13032433

PATIENT
  Age: 62 Year
  Sex: Female

DRUGS (3)
  1. REVLIMID [Suspect]
     Indication: PLASMA CELL MYELOMA
     Dosage: 15 MILLIGRAM
     Route: 048
     Dates: start: 200802, end: 200805
  2. REVLIMID [Suspect]
     Dosage: 10MG-20MG
     Route: 048
     Dates: start: 201012, end: 201106
  3. REVLIMID [Suspect]
     Dosage: 5 MILLIGRAM
     Route: 048
     Dates: start: 201111, end: 201204

REACTIONS (2)
  - Plasma cell myeloma [Unknown]
  - Drug ineffective [Not Recovered/Not Resolved]
